FAERS Safety Report 7331945-0 (Version None)
Quarter: 2011Q1

REPORT INFORMATION
  Report Type: 
  Country: None (occurrence: None)
  Receive Date: 20110228
  Receipt Date: 20110228
  Transmission Date: 20110831
  Serious: No
  Sender: FDA-Public Use
  Company Number: None

PATIENT
  Age: 70 Year
  Sex: Female
  Weight: 86 kg

DRUGS (2)
  1. PRADAXA [Suspect]
     Indication: ATRIAL FIBRILLATION
  2. PRADAXA [Suspect]
     Indication: MITRAL VALVE REPLACEMENT

REACTIONS (3)
  - MACROANGIOPATHY [None]
  - OFF LABEL USE [None]
  - CEREBROVASCULAR ACCIDENT [None]
